FAERS Safety Report 6614223-4 (Version None)
Quarter: 2010Q1

REPORT INFORMATION
  Report Type: 
  Country: None (occurrence: None)
  Receive Date: 20100303
  Receipt Date: 20100303
  Transmission Date: 20100710
  Serious: No
  Sender: FDA-Public Use
  Company Number: None

PATIENT
  Age: 63 Year
  Sex: Male

DRUGS (1)
  1. PERFLUTREN [Suspect]
     Dosage: 1 ONCE IV
     Route: 042
     Dates: start: 20100211, end: 20100211

REACTIONS (2)
  - PRURITUS [None]
  - URTICARIA [None]
